FAERS Safety Report 20175682 (Version 1)
Quarter: 2021Q4

REPORT INFORMATION
  Report Type: Spontaneous
  Country: RU (occurrence: RU)
  Receive Date: 20211213
  Receipt Date: 20211213
  Transmission Date: 20220303
  Serious: Yes (Hospitalization)
  Sender: FDA-Public Use
  Company Number: RU-Merck Healthcare KGaA-9284874

PATIENT
  Age: 62 Year
  Sex: Male

DRUGS (4)
  1. ERBITUX [Suspect]
     Active Substance: CETUXIMAB
     Indication: Laryngeal cancer
     Dosage: 430 MG, UNKNOWN
     Route: 042
     Dates: start: 20211029, end: 20211112
  2. FLUOROURACIL [Suspect]
     Active Substance: FLUOROURACIL
     Indication: Laryngeal cancer
     Dosage: 1710 MG, UNKNOWN
     Route: 042
     Dates: start: 20211029, end: 20211101
  3. CARBOPLATIN [Suspect]
     Active Substance: CARBOPLATIN
     Indication: Laryngeal cancer
     Dosage: 600 MG, UNKNOWN
     Route: 042
     Dates: start: 20211029, end: 20211029
  4. DICINONE [Concomitant]
     Indication: Product used for unknown indication
     Dosage: 500 MG, UNKNOWN

REACTIONS (1)
  - Thrombocytopenia [Recovering/Resolving]

NARRATIVE: CASE EVENT DATE: 20211112
